FAERS Safety Report 18886801 (Version 1)
Quarter: 2021Q1

REPORT INFORMATION
  Report Type: Spontaneous
  Country: US (occurrence: US)
  Receive Date: 20210212
  Receipt Date: 20210212
  Transmission Date: 20210420
  Serious: No
  Sender: FDA-Public Use
  Company Number: US-MYLANLABS-2021M1003306

PATIENT
  Sex: Female

DRUGS (4)
  1. PERJETA [Concomitant]
     Active Substance: PERTUZUMAB
     Dosage: UNK
  2. PACLITAXEL. [Concomitant]
     Active Substance: PACLITAXEL
     Dosage: UNK
  3. OGIVRI [Suspect]
     Active Substance: TRASTUZUMAB-DKST
     Indication: PRODUCT USED FOR UNKNOWN INDICATION
     Dosage: ORDERED DOSE 441MG (PATIENT ONLY RECEIVED 220MG).
     Route: 042
     Dates: start: 20210113
  4. OGIVRI [Suspect]
     Active Substance: TRASTUZUMAB-DKST
     Dosage: 221 MILLIGRAM
     Route: 042
     Dates: start: 20210114

REACTIONS (7)
  - Dry mouth [Recovered/Resolved]
  - Incorrect dose administered [Recovered/Resolved]
  - Chills [Recovered/Resolved]
  - Dyspnoea [Recovered/Resolved]
  - Adverse drug reaction [Recovered/Resolved]
  - Hypoaesthesia [Recovered/Resolved]
  - Urticaria [Recovered/Resolved]
